FAERS Safety Report 7377906-7 (Version None)
Quarter: 2011Q1

REPORT INFORMATION
  Report Type: 
  Country: None (occurrence: None)
  Receive Date: 20110328
  Receipt Date: 20110321
  Transmission Date: 20110831
  Serious: Yes (Hospitalization)
  Sender: FDA-Public Use
  Company Number: US-GENZYME-CLOF-1001504

PATIENT
  Age: 18 Year
  Sex: Female
  Weight: 54 kg

DRUGS (2)
  1. CLOLAR [Suspect]
     Indication: ACUTE MYELOID LEUKAEMIA
     Dosage: 415 MG, UNK
     Route: 042
     Dates: start: 20110301, end: 20110306
  2. CYTARABINE [Suspect]
     Indication: ACUTE MYELOID LEUKAEMIA
     Dosage: 8000 MG, UNK
     Route: 065
     Dates: start: 20110301, end: 20110306

REACTIONS (2)
  - NEUTROPENIC INFECTION [None]
  - LEFT VENTRICULAR DYSFUNCTION [None]
